FAERS Safety Report 8157037-9 (Version None)
Quarter: 2012Q1

REPORT INFORMATION
  Report Type: 
  Country: None (occurrence: None)
  Receive Date: 20120208
  Receipt Date: 20120127
  Transmission Date: 20120608
  Serious: Yes (Hospitalization)
  Sender: FDA-Public Use
  Company Number: 2012030937

PATIENT
  Age: 42 Year
  Sex: Female
  Weight: 163.2949 kg

DRUGS (35)
  1. DEPAKOTE [Concomitant]
  2. TOPAMAX [Concomitant]
  3. THEOPHYLLINE [Concomitant]
  4. BIAXIN [Concomitant]
  5. PREDNISONE TAB [Concomitant]
  6. ZAROXOLYN [Concomitant]
  7. SPIRIVA [Concomitant]
  8. HIZENTRA [Suspect]
  9. DUONEB [Concomitant]
  10. CELEBREX [Concomitant]
  11. HIZENTRA [Suspect]
     Indication: HYPOGLOBULINAEMIA
     Dosage: SEE IMAGE
     Route: 058
  12. HIZENTRA [Suspect]
  13. BENADRYL [Concomitant]
  14. IRON (IRON) [Concomitant]
  15. NOVOLOG [Concomitant]
  16. MIRAPEX [Concomitant]
  17. ZYFLO [Concomitant]
  18. PROTONIX [Concomitant]
  19. HYDROCODONE BITARTRATE [Concomitant]
  20. PLAVIX [Concomitant]
  21. OXYGEN (OXYGEN) [Concomitant]
  22. ALBUTEROL [Concomitant]
  23. LIPITOR [Concomitant]
  24. NEURONTIN [Concomitant]
  25. CALTRATE (CALTRATE /01721501/) [Concomitant]
  26. NASACORT [Concomitant]
  27. LASIX [Concomitant]
  28. METOCLOPRAMIDE [Concomitant]
  29. XYZAL [Concomitant]
  30. BENADRYL [Concomitant]
  31. ACETAMINOPHEN [Concomitant]
  32. POTASSIUM CHLORIDE [Concomitant]
  33. ASPIRIN [Concomitant]
  34. AVAPRO [Concomitant]
  35. FOLIC ACID [Concomitant]

REACTIONS (1)
  - UPPER RESPIRATORY TRACT INFECTION [None]
